FAERS Safety Report 13163820 (Version 3)
Quarter: 2017Q1

REPORT INFORMATION
  Report Type: Spontaneous
  Country: US (occurrence: US)
  Receive Date: 20170130
  Receipt Date: 20170309
  Transmission Date: 20170428
  Serious: Yes (Disabling, Other)
  Sender: FDA-Public Use
  Company Number: US-009507513-1701USA008504

PATIENT
  Age: 19 Year
  Sex: Male
  Weight: 42 kg

DRUGS (22)
  1. ZOFRAN [Concomitant]
     Active Substance: ONDANSETRON HYDROCHLORIDE
     Dosage: UNK
  2. ZOCOR [Concomitant]
     Active Substance: SIMVASTATIN
     Route: 048
  3. ZOLOFT [Concomitant]
     Active Substance: SERTRALINE HYDROCHLORIDE
     Dosage: UNK MG, UNK
  4. RAPAMUNE [Concomitant]
     Active Substance: SIROLIMUS
  5. LOVENOX [Concomitant]
     Active Substance: ENOXAPARIN SODIUM
     Dosage: UNK
  6. TUMS ULTRA [Concomitant]
     Active Substance: CALCIUM CARBONATE
  7. REGLAN [Concomitant]
     Active Substance: METOCLOPRAMIDE HYDROCHLORIDE
     Dosage: UNK MG, UNK
  8. ARTIFICIAL TEARS (DEXTRAN 70 (+) HYPROMELLOSE) [Concomitant]
  9. JAKAFI [Suspect]
     Active Substance: RUXOLITINIB
     Dosage: 5 MG, BID
     Route: 048
     Dates: start: 201511
  10. JAKAFI [Suspect]
     Active Substance: RUXOLITINIB
     Dosage: 10 MG, QD
     Route: 048
  11. DELTASONE [Concomitant]
     Active Substance: PREDNISONE
     Dosage: UNK MG, UNK
  12. BECLOMETHASONE DIPROPIONATE [Concomitant]
     Active Substance: BECLOMETHASONE DIPROPIONATE
  13. PHENERGAN [Concomitant]
     Active Substance: PROMETHAZINE HYDROCHLORIDE
     Dosage: UNK
  14. METHADONE HYDROCHLORIDE. [Concomitant]
     Active Substance: METHADONE HYDROCHLORIDE
     Dosage: UNK
  15. ZITHROMAX [Concomitant]
     Active Substance: AZITHROMYCIN DIHYDRATE
     Dosage: UNK MG, UNK
  16. JAKAFI [Suspect]
     Active Substance: RUXOLITINIB
     Indication: CHRONIC GRAFT VERSUS HOST DISEASE
     Dosage: 5 MG, UNK
     Route: 048
     Dates: start: 20151008
  17. JAKAFI [Suspect]
     Active Substance: RUXOLITINIB
     Dosage: UNK
     Dates: start: 20160817
  18. COZAAR [Suspect]
     Active Substance: LOSARTAN POTASSIUM
     Indication: HYPERTENSION
     Dosage: 25 MG, QD
     Route: 051
  19. ATIVAN [Concomitant]
     Active Substance: LORAZEPAM
     Dosage: UNK MG, UNK
  20. ADVIL [Concomitant]
     Active Substance: IBUPROFEN
     Dosage: UNK
  21. ZYRTEC [Concomitant]
     Active Substance: CETIRIZINE HYDROCHLORIDE
     Dosage: UNK
  22. PREVACID [Concomitant]
     Active Substance: LANSOPRAZOLE
     Dosage: UNK

REACTIONS (45)
  - Electrocardiogram T wave inversion [Unknown]
  - Renal failure [Recovering/Resolving]
  - Headache [Unknown]
  - Hepatocellular injury [Unknown]
  - Iron overload [Unknown]
  - Alopecia [Unknown]
  - Supraventricular extrasystoles [Unknown]
  - Blood alkaline phosphatase increased [Recovering/Resolving]
  - Sleep disorder [Unknown]
  - Nausea [Unknown]
  - Hepatic fibrosis [Unknown]
  - Hydronephrosis [Unknown]
  - Cholelithiasis [Unknown]
  - Alanine aminotransferase increased [Recovering/Resolving]
  - Venous injury [Unknown]
  - Muscular weakness [Unknown]
  - Dry eye [Unknown]
  - Breath sounds abnormal [Unknown]
  - Dysphagia [Unknown]
  - Paraesthesia [Unknown]
  - Liver function test increased [Recovering/Resolving]
  - Aspartate aminotransferase increased [Recovering/Resolving]
  - Decubitus ulcer [Recovered/Resolved]
  - Weight increased [Unknown]
  - Renal disorder [Unknown]
  - Arthralgia [Unknown]
  - Autoimmune hepatitis [Unknown]
  - Vocal cord paresis [Unknown]
  - Skin texture abnormal [Recovering/Resolving]
  - Renal cyst [Unknown]
  - Respiratory failure [Recovered/Resolved]
  - Photophobia [Unknown]
  - Musculoskeletal stiffness [Unknown]
  - Joint range of motion decreased [Recovering/Resolving]
  - Lung disorder [Unknown]
  - Dilatation atrial [Unknown]
  - Liver disorder [Unknown]
  - Gamma-glutamyltransferase increased [Recovering/Resolving]
  - Chronic graft versus host disease in liver [Recovering/Resolving]
  - Electrocardiogram QT prolonged [Unknown]
  - Hepatitis [Unknown]
  - Pancreatic disorder [Unknown]
  - Spleen atrophy [Unknown]
  - Hyperlipidaemia [Unknown]
  - Vitamin D deficiency [Unknown]

NARRATIVE: CASE EVENT DATE: 20151201
